FAERS Safety Report 22615156 (Version 1)
Quarter: 2023Q2

REPORT INFORMATION
  Report Type: Spontaneous
  Country: US (occurrence: US)
  Receive Date: 20230619
  Receipt Date: 20230619
  Transmission Date: 20230722
  Serious: Yes (Other)
  Sender: FDA-Public Use
  Company Number: US-002147023-NVSC2023US135682

PATIENT
  Sex: Female

DRUGS (6)
  1. TACROLIMUS [Suspect]
     Active Substance: TACROLIMUS
     Indication: Immunosuppressant drug therapy
     Dosage: TARGET TROUGH LEVEL TO 4-6 NG/ML
     Route: 065
  2. TACROLIMUS [Suspect]
     Active Substance: TACROLIMUS
     Indication: Pancreas islet cell transplant
  3. AZATHIOPRINE [Suspect]
     Active Substance: AZATHIOPRINE
     Indication: Immunosuppressant drug therapy
     Dosage: 125 MG
     Route: 065
  4. AZATHIOPRINE [Suspect]
     Active Substance: AZATHIOPRINE
     Indication: Pancreas islet cell transplant
  5. INSULIN NOS [Suspect]
     Active Substance: INSULIN NOS
     Indication: Insulin therapy
     Dosage: UP TO 35 UNITS PER DAY
     Route: 065
  6. ASPIRIN [Suspect]
     Active Substance: ASPIRIN
     Indication: Prophylaxis
     Dosage: 81 MG, QD FOLLOWING THE TWELFTH WEEK OF PREGNANCY
     Route: 065

REACTIONS (4)
  - Premature delivery [Unknown]
  - Pre-eclampsia [Unknown]
  - Maternal exposure during pregnancy [Unknown]
  - Product use in unapproved indication [Unknown]
